FAERS Safety Report 5028448-5 (Version None)
Quarter: 2006Q2

REPORT INFORMATION
  Report Type: 
  Country: None (occurrence: None)
  Receive Date: 20060617
  Receipt Date: 20060613
  Transmission Date: 20061013
  Serious: Yes (Other)
  Sender: FDA-Public Use
  Company Number: CA-GLAXOSMITHKLINE-A0609036A

PATIENT
  Age: 27 Year
  Sex: Female

DRUGS (6)
  1. ZIAGEN [Suspect]
     Indication: DRUG USE FOR UNKNOWN INDICATION
     Dosage: 300MG TWICE PER DAY
     Route: 065
  2. ASPIRIN [Concomitant]
  3. ORTHO EVRA [Concomitant]
  4. SEPTRA DS [Concomitant]
  5. SERAX [Concomitant]
  6. SUSTIVA [Concomitant]

REACTIONS (5)
  - ERYTHEMA [None]
  - HYPERAESTHESIA [None]
  - MALAISE [None]
  - OEDEMA [None]
  - PYREXIA [None]
